FAERS Safety Report 6893319-6 (Version None)
Quarter: 2010Q3

REPORT INFORMATION
  Report Type: 
  Country: None (occurrence: None)
  Receive Date: 20100731
  Receipt Date: 20090818
  Transmission Date: 20110219
  Serious: No
  Sender: FDA-Public Use
  Company Number: US-PFIZER INC-2009221968

PATIENT
  Sex: Male
  Weight: 77.098 kg

DRUGS (1)
  1. MECLIZINE HCL [Suspect]
     Indication: LABYRINTHITIS
     Dosage: 12.5 MG, 3X/DAY
     Dates: start: 20090501

REACTIONS (1)
  - DRUG EFFECT DELAYED [None]
